FAERS Safety Report 8340634-5 (Version None)
Quarter: 2012Q1

REPORT INFORMATION
  Report Type: 
  Country: None (occurrence: None)
  Receive Date: 20120329
  Receipt Date: 20091012
  Transmission Date: 20120608
  Serious: Yes (Hospitalization, Other)
  Sender: FDA-Public Use
  Company Number: PHEH2009US13684

PATIENT
  Age: 96 Year
  Sex: Female

DRUGS (1)
  1. EXELON [Suspect]
     Indication: MEMORY IMPAIRMENT
     Dosage: 4.6 MG,QD, TRANSDERMAL
     Route: 062
     Dates: start: 20090923, end: 20090925

REACTIONS (2)
  - PNEUMONIA [None]
  - VOMITING [None]
